FAERS Safety Report 13760389 (Version 1)
Quarter: 2017Q3

REPORT INFORMATION
  Report Type: Spontaneous
  Country: US (occurrence: US)
  Receive Date: 20170717
  Receipt Date: 20170717
  Transmission Date: 20171127
  Serious: No
  Sender: FDA-Public Use
  Company Number: US-SHIRE-US201714036

PATIENT
  Age: 26 Year
  Sex: Male
  Weight: 95.24 kg

DRUGS (1)
  1. VYVANSE [Suspect]
     Active Substance: LISDEXAMFETAMINE DIMESYLATE
     Indication: ATTENTION DEFICIT/HYPERACTIVITY DISORDER
     Dosage: 50 MG, 1X/DAY:QD
     Route: 048
     Dates: start: 20170606

REACTIONS (4)
  - Drug effect variable [Not Recovered/Not Resolved]
  - Intentional overdose [Recovered/Resolved]
  - Inability to afford medication [Unknown]
  - Product quality issue [Unknown]

NARRATIVE: CASE EVENT DATE: 201706
